FAERS Safety Report 4348319-7 (Version None)
Quarter: 2004Q2

REPORT INFORMATION
  Report Type: 
  Country: None (occurrence: None)
  Receive Date: 20040427
  Receipt Date: 20040420
  Transmission Date: 20050107
  Serious: Yes (Life-Threatening, Hospitalization, Disabling)
  Sender: FDA-Public Use
  Company Number: US-GLAXOSMITHKLINE-A0507868A

PATIENT
  Age: 62 Year
  Sex: Female

DRUGS (6)
  1. CARVEDILOL [Suspect]
     Indication: ARRHYTHMIA
     Dosage: 10MG PER DAY
     Route: 048
     Dates: start: 20031215
  2. CORDIUM [Suspect]
     Indication: ARRHYTHMIA
     Dosage: 150MG PER DAY
     Route: 048
     Dates: start: 20040121, end: 20040209
  3. WARFARIN POTASSIUM [Concomitant]
     Indication: COAGULOPATHY
     Dosage: .5MG PER DAY
     Dates: start: 20031215
  4. FUROSEMIDE [Concomitant]
     Indication: CARDIAC FAILURE
     Dosage: 20MG PER DAY
     Dates: start: 20031216
  5. SENNA LEAF [Concomitant]
     Indication: CONSTIPATION
     Dosage: 24MG PER DAY
     Dates: start: 20031216
  6. DISOPYRAMIDE [Concomitant]

REACTIONS (7)
  - ADAMS-STOKES SYNDROME [None]
  - DISSEMINATED INTRAVASCULAR COAGULATION [None]
  - DRUG INTERACTION [None]
  - LOSS OF CONSCIOUSNESS [None]
  - SINUS BRADYCARDIA [None]
  - SUPRAVENTRICULAR EXTRASYSTOLES [None]
  - VENTRICULAR FIBRILLATION [None]
